FAERS Safety Report 4655223-3 (Version None)
Quarter: 2005Q2

REPORT INFORMATION
  Report Type: 
  Country: None (occurrence: None)
  Receive Date: 20050506
  Receipt Date: 20050406
  Transmission Date: 20051028
  Serious: Yes (Hospitalization)
  Sender: FDA-Public Use
  Company Number: GB-GLAXOSMITHKLINE-B0377280A

PATIENT
  Age: 78 Year
  Sex: Male
  Weight: 104 kg

DRUGS (8)
  1. AVANDIA [Suspect]
     Dosage: 8MG PER DAY
     Route: 048
     Dates: start: 20030601
  2. ASPIRIN [Suspect]
     Dosage: 76MG PER DAY
     Route: 048
     Dates: start: 19880101
  3. METFORMIN [Concomitant]
     Dosage: 850MG THREE TIMES PER DAY
     Route: 048
     Dates: start: 19960101
  4. LANSOPRAZOLE [Concomitant]
     Dosage: 30MG PER DAY
     Route: 048
     Dates: start: 19960101
  5. GLICLAZIDE [Concomitant]
     Dosage: 80MG TWICE PER DAY
     Route: 048
     Dates: start: 19960101
  6. ISMN [Concomitant]
     Dosage: 60MG PER DAY
     Route: 048
     Dates: start: 19880101
  7. FUROSEMIDE [Concomitant]
     Dosage: 40MG PER DAY
     Route: 048
     Dates: start: 19880101
  8. ATORVASTATIN [Concomitant]
     Dosage: 10MG PER DAY
     Route: 048
     Dates: start: 19970101

REACTIONS (1)
  - DYSPNOEA [None]
